FAERS Safety Report 14412883 (Version 1)
Quarter: 2018Q1

REPORT INFORMATION
  Report Type: Spontaneous
  Country: US (occurrence: US)
  Receive Date: 20180119
  Receipt Date: 20180119
  Transmission Date: 20180509
  Serious: Yes (Hospitalization)
  Sender: FDA-Public Use
  Company Number: None

PATIENT
  Age: 81 Year
  Sex: Male
  Weight: 65 kg

DRUGS (10)
  1. WARFARIN [Suspect]
     Active Substance: WARFARIN
     Indication: ATRIAL FIBRILLATION
     Dosage: DATE OF USE CHRONIC?MWF?5MG TTHSS PO
     Route: 048
  2. AUGMENTIN [Concomitant]
     Active Substance: AMOXICILLIN\CLAVULANATE POTASSIUM
  3. FE [Concomitant]
     Active Substance: IRON
  4. CYANOCOBALAMIN. [Concomitant]
     Active Substance: CYANOCOBALAMIN
  5. PROSCAR [Concomitant]
     Active Substance: FINASTERIDE
  6. ZOCOR [Concomitant]
     Active Substance: SIMVASTATIN
  7. VITAMIN C [Concomitant]
     Active Substance: ASCORBIC ACID
  8. SYMBICORT [Concomitant]
     Active Substance: BUDESONIDE\FORMOTEROL FUMARATE DIHYDRATE
  9. LASIX [Concomitant]
     Active Substance: FUROSEMIDE
  10. ALBUTEROL. [Concomitant]
     Active Substance: ALBUTEROL

REACTIONS (2)
  - International normalised ratio increased [None]
  - Anaemia [None]

NARRATIVE: CASE EVENT DATE: 20170922
